FAERS Safety Report 8600666-6 (Version None)
Quarter: 2012Q3

REPORT INFORMATION
  Report Type: 
  Country: None (occurrence: None)
  Receive Date: 20120817
  Receipt Date: 20120807
  Transmission Date: 20120928
  Serious: Yes (Hospitalization)
  Sender: FDA-Public Use
  Company Number: US-JNJFOC-20120805495

PATIENT
  Sex: Female
  Weight: 74.84 kg

DRUGS (4)
  1. REMICADE [Suspect]
     Indication: CROHN'S DISEASE
     Route: 042
  2. REMICADE [Suspect]
     Route: 042
     Dates: start: 20120301
  3. AVELOX [Suspect]
     Indication: AURICULAR SWELLING
     Route: 065
  4. AZITHROMYCIN [Suspect]
     Indication: AURICULAR SWELLING
     Route: 048
     Dates: start: 20120616, end: 20120620

REACTIONS (8)
  - ELECTROLYTE DEPLETION [None]
  - THIRST [None]
  - DRY MOUTH [None]
  - BLOOD SODIUM DECREASED [None]
  - AURICULAR SWELLING [None]
  - APTYALISM [None]
  - SALIVARY GLAND ENLARGEMENT [None]
  - BLOOD POTASSIUM DECREASED [None]
